FAERS Safety Report 6205971-9 (Version None)
Quarter: 2009Q2

REPORT INFORMATION
  Report Type: 
  Country: None (occurrence: None)
  Receive Date: 20090527
  Receipt Date: 20090527
  Transmission Date: 20091009
  Serious: Yes (Other)
  Sender: FDA-Public Use
  Company Number: None

PATIENT
  Age: 28 Year
  Sex: Female
  Weight: 77.1115 kg

DRUGS (2)
  1. INDERAL [Suspect]
     Indication: CARDIAC MURMUR
     Dosage: RAISED TO 2 A DAY PO
     Route: 048
  2. INDERAL [Suspect]
     Indication: TACHYCARDIA
     Dosage: RAISED TO 2 A DAY PO
     Route: 048

REACTIONS (6)
  - DRUG PRESCRIBING ERROR [None]
  - IMPAIRED WORK ABILITY [None]
  - INCORRECT DOSE ADMINISTERED [None]
  - MALAISE [None]
  - MEDICATION ERROR [None]
  - SYSTEMIC LUPUS ERYTHEMATOSUS [None]
